FAERS Safety Report 5399273-0 (Version None)
Quarter: 2007Q3

REPORT INFORMATION
  Report Type: 
  Country: None (occurrence: None)
  Receive Date: 20070727
  Receipt Date: 20070718
  Transmission Date: 20080115
  Serious: Yes (Death)
  Sender: FDA-Public Use
  Company Number: B0479498A

PATIENT
  Age: 24 Year
  Sex: Female

DRUGS (11)
  1. PAXIL [Suspect]
     Indication: DEPRESSION
     Route: 048
     Dates: start: 20051031, end: 20060203
  2. LULLAN [Concomitant]
     Indication: BIPOLAR II DISORDER
     Dosage: 8MG FOUR TIMES PER DAY
     Route: 048
     Dates: start: 20051031, end: 20060203
  3. DEPAS [Concomitant]
     Indication: BIPOLAR II DISORDER
     Dosage: 1MG FOUR TIMES PER DAY
     Route: 048
     Dates: start: 20051031, end: 20060203
  4. BROTIZOLAM [Concomitant]
     Indication: INSOMNIA
     Dosage: .25MG PER DAY
     Route: 048
     Dates: start: 20051031, end: 20060203
  5. SILECE [Concomitant]
     Indication: INSOMNIA
     Dosage: 4MG PER DAY
     Route: 048
     Dates: start: 20051031, end: 20060203
  6. PROMETHAZINE [Concomitant]
     Indication: INSOMNIA
     Dosage: 25MG PER DAY
     Route: 048
     Dates: start: 20051031, end: 20060203
  7. CLOMIPRAMINE HCL [Concomitant]
  8. ALPRAZOLAM [Concomitant]
  9. VALPROATE SODIUM [Concomitant]
  10. RISPERIDONE [Concomitant]
  11. OLANZAPINE [Concomitant]

REACTIONS (6)
  - ASPHYXIA [None]
  - ASPIRATION [None]
  - COMPLETED SUICIDE [None]
  - DYSPNOEA [None]
  - OVERDOSE [None]
  - VOMITING [None]
